FAERS Safety Report 7019833-0 (Version None)
Quarter: 2010Q3

REPORT INFORMATION
  Report Type: 
  Country: None (occurrence: None)
  Receive Date: 20100929
  Receipt Date: 20100924
  Transmission Date: 20110219
  Serious: Yes (Hospitalization)
  Sender: FDA-Public Use
  Company Number: IT-BRISTOL-MYERS SQUIBB COMPANY-15292808

PATIENT
  Age: 82 Year
  Sex: Female

DRUGS (7)
  1. COUMADIN [Suspect]
     Indication: ATRIAL FIBRILLATION
     Dosage: INTERRUPTED ON 08AUG10.THERAPY RESTARTED
     Dates: start: 20060803
  2. VASEXTEN [Concomitant]
     Dosage: 1 DF = 1 POSOLOGICAL UNIT,FORMLN:20 MG,CAPS
     Route: 048
     Dates: start: 20061016, end: 20100808
  3. ATENOLOL [Concomitant]
     Dosage: 1 DF = 1 POSOLOGICAL UNIT,COATED TABS
     Route: 048
     Dates: start: 20060803, end: 20100808
  4. TIARTAN [Concomitant]
     Dosage: 1 DF = POSOLOGICAL UNIT,FORMLN:600/12.5 MG ,COATED TABS
     Route: 048
     Dates: start: 20071126, end: 20100808
  5. COMPETACT [Concomitant]
     Dosage: FORMLN:15MG/850MG FILM COATED TABS
     Route: 048
     Dates: start: 20100315, end: 20100808
  6. ISOSORBIDE MONONITRATE [Concomitant]
     Dosage: 1 DF = 1 POSOLOGICAL UNIT,FORMLN:60MG,PROLONGED RELEASE TABS
     Route: 048
     Dates: start: 20060803, end: 20100808
  7. CRESTOR [Concomitant]
     Dosage: 1 DF =1 POSOLOGIC UNIT,FORMLN:10 MG FILM COATED TABS
     Route: 048
     Dates: start: 20100217, end: 20100809

REACTIONS (6)
  - FALL [None]
  - HAEMATOMA [None]
  - HAEMORRHAGE [None]
  - HEAD INJURY [None]
  - VISION BLURRED [None]
  - VOMITING [None]
